FAERS Safety Report 10946268 (Version 1)
Quarter: 2015Q1

REPORT INFORMATION
  Report Type: Spontaneous
  Country: US (occurrence: None)
  Receive Date: 20150212
  Receipt Date: 20150212
  Transmission Date: 20150721
  Serious: No
  Sender: FDA-Public Use
  Company Number: TPA2012A00340

PATIENT
  Age: 64 Year
  Sex: Male
  Weight: 111.13 kg

DRUGS (3)
  1. DIOVAN [Concomitant]
     Active Substance: VALSARTAN
  2. ULORIC [Suspect]
     Active Substance: FEBUXOSTAT
     Indication: GOUT
     Dosage: 1 IN 1 D
     Route: 048
     Dates: start: 20111130, end: 20120114
  3. ZYRTEC [Concomitant]
     Active Substance: CETIRIZINE HYDROCHLORIDE

REACTIONS (6)
  - Liver scan abnormal [None]
  - Weight decreased [None]
  - Faeces pale [None]
  - Abdominal distension [None]
  - Gastrointestinal pain [None]
  - Hepatic enzyme increased [None]

NARRATIVE: CASE EVENT DATE: 20111225
